FAERS Safety Report 23916011 (Version 3)
Quarter: 2025Q2

REPORT INFORMATION
  Report Type: Spontaneous
  Country: US (occurrence: US)
  Receive Date: 20240529
  Receipt Date: 20250510
  Transmission Date: 20250716
  Serious: No
  Sender: SANOFI AVENTIS
  Company Number: US-SA-SAC20240523000539

PATIENT
  Age: 74 Year
  Sex: Male

DRUGS (26)
  1. DUPIXENT [Suspect]
     Active Substance: DUPILUMAB
     Indication: Asthma
     Dosage: 300 MG, QOW
     Route: 058
     Dates: start: 202404
  2. ALBUTEROL SULFATE [Concomitant]
     Active Substance: ALBUTEROL SULFATE
  3. ALFUZOSIN HYDROCHLORIDE [Concomitant]
     Active Substance: ALFUZOSIN HYDROCHLORIDE
  4. ATORVASTATIN [Concomitant]
     Active Substance: ATORVASTATIN
  5. AZELASTINE HYDROCHLORIDE [Concomitant]
     Active Substance: AZELASTINE HYDROCHLORIDE
  6. LEVOTHYROXINE [Concomitant]
     Active Substance: LEVOTHYROXINE
  7. DILTIAZEM HYDROCHLORIDE [Concomitant]
     Active Substance: DILTIAZEM HYDROCHLORIDE
  8. DUEXIS [Concomitant]
     Active Substance: FAMOTIDINE\IBUPROFEN
  9. ESOMEPRAZOLE [Concomitant]
     Active Substance: ESOMEPRAZOLE
  10. FINASTERIDE [Concomitant]
     Active Substance: FINASTERIDE
  11. FLUTICASONE [Concomitant]
     Active Substance: FLUTICASONE
  12. FOLIC ACID [Concomitant]
     Active Substance: FOLIC ACID
  13. HYDRALAZINE [Concomitant]
     Active Substance: HYDRALAZINE HYDROCHLORIDE
  14. INCRUSE ELLIPTA [Concomitant]
     Active Substance: UMECLIDINIUM BROMIDE
  15. LORATADINE [Concomitant]
     Active Substance: LORATADINE
  16. METFORMIN HYDROCHLORIDE [Concomitant]
     Active Substance: METFORMIN HYDROCHLORIDE
  17. MONTELUKAST [Concomitant]
     Active Substance: MONTELUKAST
  18. PROPAFENONE [Concomitant]
     Active Substance: PROPAFENONE
  19. SYMBICORT [Concomitant]
     Active Substance: BUDESONIDE\FORMOTEROL FUMARATE DIHYDRATE
  20. TADALAFIL [Concomitant]
     Active Substance: TADALAFIL
  21. TESTOSTERONE [Concomitant]
     Active Substance: TESTOSTERONE
  22. VALSARTAN [Concomitant]
     Active Substance: VALSARTAN
  23. FISH OIL [Concomitant]
     Active Substance: FISH OIL
  24. ASPIRIN [Concomitant]
     Active Substance: ASPIRIN
  25. JARDIANCE [Concomitant]
     Active Substance: EMPAGLIFLOZIN
  26. BREZTRI [Concomitant]
     Active Substance: BUDESONIDE\FORMOTEROL\GLYCOPYRROLATE

REACTIONS (4)
  - Cough [Not Recovered/Not Resolved]
  - Wheezing [Not Recovered/Not Resolved]
  - Dyspnoea [Not Recovered/Not Resolved]
  - Drug ineffective [Unknown]

NARRATIVE: CASE EVENT DATE: 20240101
